FAERS Safety Report 8645082 (Version 3)
Quarter: 2012Q4

REPORT INFORMATION
  Report Type: 
  Country: JP (occurrence: JP)
  Receive Date: 20120702
  Receipt Date: 20120925
  Transmission Date: 20130627
  Serious: Yes (Other)
  Sender: FDA-Public Use
  Company Number: PHHY2012JP055776

PATIENT
  Age: 75 Year
  Sex: Female

DRUGS (5)
  1. ZOMETA [Suspect]
     Indication: MULTIPLE MYELOMA
     Dosage: 4 mg, per administration
     Route: 041
  2. CHEMOTHERAPEUTICS NOS [Concomitant]
     Dosage: UNK UKN, UNK
  3. CHEMOTHERAPEUTICS NOS [Concomitant]
     Dosage: UNK UKN, UNK
  4. ARIMIDEX [Concomitant]
     Dosage: 1 mg, UNK
     Route: 048
  5. TS 1 [Concomitant]
     Dosage: UNK UKN, UNK
     Route: 048

REACTIONS (2)
  - Osteonecrosis of jaw [Not Recovered/Not Resolved]
  - Oral infection [Unknown]
